FAERS Safety Report 5423619-8 (Version None)
Quarter: 2007Q3

REPORT INFORMATION
  Report Type: 
  Country: None (occurrence: None)
  Receive Date: 20070823
  Receipt Date: 20070814
  Transmission Date: 20080115
  Serious: Yes (Hospitalization)
  Sender: FDA-Public Use
  Company Number: AU-ASTRAZENECA-2007AP05024

PATIENT
  Sex: Female

DRUGS (3)
  1. LOSEC I.V. [Suspect]
     Dosage: CYCLED DOSES TWO WEEKS ON/TWO WEEKS OFF
     Route: 048
  2. LOSEC I.V. [Suspect]
     Route: 048
     Dates: end: 20070801
  3. PLAVIX [Concomitant]
     Dates: start: 20060101

REACTIONS (3)
  - CEREBROVASCULAR ACCIDENT [None]
  - MOUTH ULCERATION [None]
  - SWOLLEN TONGUE [None]
